FAERS Safety Report 22304669 (Version 1)
Quarter: 2023Q2

REPORT INFORMATION
  Report Type: Spontaneous
  Country: US (occurrence: US)
  Receive Date: 20230510
  Receipt Date: 20230510
  Transmission Date: 20230721
  Serious: Yes (Other)
  Sender: FDA-Public Use
  Company Number: US-BRISTOL-MYERS SQUIBB COMPANY-2022-145039

PATIENT
  Age: 85 Year
  Sex: Male

DRUGS (3)
  1. NIVOLUMAB [Suspect]
     Active Substance: NIVOLUMAB
     Indication: Colon cancer
     Dosage: FOR 3 CYCLES
     Route: 042
  2. IPILIMUMAB [Suspect]
     Active Substance: IPILIMUMAB
     Indication: Colon cancer
     Dosage: FOR 3 CYCLES
     Route: 042
  3. THYMOQUINONE [Suspect]
     Active Substance: THYMOQUINONE
     Indication: Colon cancer
     Dosage: 500 MG, THREE TABLETS DAILY (1500 MG)

REACTIONS (1)
  - Immune-mediated lung disease [Unknown]
